FAERS Safety Report 10055008 (Version 2)
Quarter: 2014Q2

REPORT INFORMATION
  Report Type: Spontaneous
  Country: US (occurrence: US)
  Receive Date: 20140402
  Receipt Date: 20140506
  Transmission Date: 20141212
  Serious: Yes (Hospitalization, Disabling)
  Sender: FDA-Public Use
  Company Number: PHEH2014US006429

PATIENT
  Sex: Male

DRUGS (6)
  1. CLOZARIL [Suspect]
     Indication: SCHIZOPHRENIA
     Dosage: 300 MG, BID
     Route: 048
  2. HALDOL [Concomitant]
     Dosage: 50 MG
  3. PAXIL [Concomitant]
     Dosage: UNK
  4. LEVOTHYROXINE [Concomitant]
     Dosage: UNK
  5. LEVOTHYROXINE [Concomitant]
     Dosage: UNK, CHANGING DOSAGE
  6. LEVOTHYROXINE [Concomitant]
     Dosage: 500 MG, DAILY

REACTIONS (4)
  - Urinary incontinence [Not Recovered/Not Resolved]
  - Nephropathy [Unknown]
  - Diabetes insipidus [Unknown]
  - Frustration [Unknown]
